FAERS Safety Report 4784165-8 (Version None)
Quarter: 2005Q3

REPORT INFORMATION
  Report Type: 
  Country: None (occurrence: None)
  Receive Date: 20050930
  Receipt Date: 20050819
  Transmission Date: 20060218
  Serious: No
  Sender: FDA-Public Use
  Company Number: US-GLAXOSMITHKLINE-A0570964A

PATIENT
  Age: 76 Year
  Sex: Female

DRUGS (18)
  1. FLOVENT [Suspect]
     Indication: ASTHMA
     Dosage: 2PUFF TWICE PER DAY
     Route: 055
  2. ACTONEL [Concomitant]
  3. AVANDIA [Concomitant]
  4. CYCLOBENZAPRINE HCL [Concomitant]
  5. DIOVAN [Concomitant]
  6. DYNACIRC [Concomitant]
  7. FUROSEMIDE [Concomitant]
  8. HYDRALAZINE [Concomitant]
  9. ISOSORBIDE [Concomitant]
  10. METOPROLOL [Concomitant]
  11. POTASSIUM [Concomitant]
  12. RHINOCORT [Concomitant]
  13. TRICOR [Concomitant]
  14. HUMALOG [Concomitant]
  15. HUMULIN N [Concomitant]
  16. ASPIRIN [Concomitant]
  17. GLUCOSAMINE [Concomitant]
  18. DICLOFENAC SODIUM [Concomitant]

REACTIONS (2)
  - COUGH [None]
  - PHARMACEUTICAL PRODUCT COMPLAINT [None]
